FAERS Safety Report 6970122-X (Version None)
Quarter: 2010Q3

REPORT INFORMATION
  Report Type: 
  Country: None (occurrence: None)
  Receive Date: 20100908
  Receipt Date: 20100825
  Transmission Date: 20110219
  Serious: Yes (Congenital Anomaly, Other)
  Sender: FDA-Public Use
  Company Number: US-ELI_LILLY_AND_COMPANY-US201006001860

PATIENT
  Age: 15 Month
  Sex: Female

DRUGS (3)
  1. CYMBALTA [Suspect]
     Dosage: 60 MG, DAILY (1/D)
     Route: 064
  2. WELLBUTRIN XL [Concomitant]
     Dosage: 450 MG, DAILY (1/D)
     Route: 064
  3. CLONAZEPAM [Concomitant]
     Dosage: UNK, AS NEEDED

REACTIONS (4)
  - DRUG EXPOSURE DURING PREGNANCY [None]
  - DYSPHAGIA [None]
  - LARYNGOMALACIA [None]
  - SPEECH DISORDER [None]
